FAERS Safety Report 16797118 (Version 9)
Quarter: 2020Q2

REPORT INFORMATION
  Report Type: Report from Study
  Country: JP (occurrence: JP)
  Receive Date: 20190911
  Receipt Date: 20200518
  Transmission Date: 20200713
  Serious: Yes (Death, Life-Threatening, Hospitalization, Other)
  Sender: FDA-Public Use
  Company Number: PHJP2019JP011921

PATIENT
  Age: 73 Year
  Sex: Male

DRUGS (9)
  1. BISOPROLOL [Concomitant]
     Active Substance: BISOPROLOL
     Indication: PRODUCT USED FOR UNKNOWN INDICATION
     Dosage: UNK
     Route: 065
  2. DARBEPOETIN ALFA [Concomitant]
     Active Substance: DARBEPOETIN ALFA
     Indication: APLASTIC ANAEMIA
     Dosage: 120 UG
     Route: 042
     Dates: start: 20181214, end: 20190802
  3. JADENU [Concomitant]
     Active Substance: DEFERASIROX
     Indication: APLASTIC ANAEMIA
     Dosage: 90 MG, UNK
     Route: 048
     Dates: start: 20190802, end: 20190818
  4. PRIMOBOLAN [Concomitant]
     Active Substance: METHENOLONE
     Indication: APLASTIC ANAEMIA
     Dosage: 15 MG
     Route: 065
     Dates: start: 20170124, end: 20190818
  5. SUNRYTHM [Concomitant]
     Active Substance: PILSICAINIDE HYDROCHLORIDE
     Indication: PRODUCT USED FOR UNKNOWN INDICATION
     Dosage: UNK
     Route: 065
  6. FLUCONAZOLE. [Concomitant]
     Active Substance: FLUCONAZOLE
     Indication: PRODUCT USED FOR UNKNOWN INDICATION
     Dosage: UNK
     Route: 065
  7. DAIPHEN [Concomitant]
     Active Substance: SULFAMETHOXAZOLE\TRIMETHOPRIM
     Indication: PRODUCT USED FOR UNKNOWN INDICATION
     Dosage: UNK
     Route: 065
  8. REVOLADE TAB [Suspect]
     Active Substance: ELTROMBOPAG
     Indication: APLASTIC ANAEMIA
     Dosage: 25 MG
     Route: 048
     Dates: start: 20190718, end: 20190818
  9. NEORAL [Suspect]
     Active Substance: CYCLOSPORINE
     Indication: APLASTIC ANAEMIA
     Dosage: 200 MG
     Route: 048
     Dates: start: 20181010, end: 20190826

REACTIONS (12)
  - Pneumonia [Fatal]
  - Disease progression [Fatal]
  - Pyrexia [Recovering/Resolving]
  - Hepatic enzyme increased [Unknown]
  - Neutropenic infection [Unknown]
  - Liver disorder [Recovering/Resolving]
  - Multiple organ dysfunction syndrome [Fatal]
  - Renal impairment [Not Recovered/Not Resolved]
  - Sepsis [Fatal]
  - Ischaemic hepatitis [Fatal]
  - Drug ineffective [Unknown]
  - Aplastic anaemia [Fatal]

NARRATIVE: CASE EVENT DATE: 201908
